FAERS Safety Report 4477041-1 (Version None)
Quarter: 2004Q4

REPORT INFORMATION
  Report Type: 
  Country: None (occurrence: None)
  Receive Date: 20041018
  Receipt Date: 20040225
  Transmission Date: 20050328
  Serious: Yes (Death)
  Sender: FDA-Public Use
  Company Number: BE-JNJFOC-20040200117

PATIENT
  Age: 58 Year
  Sex: Male

DRUGS (27)
  1. CISAPRIDE [Suspect]
     Indication: DIABETIC GASTROPARESIS
     Dates: start: 20030724
  2. PROZAC [Concomitant]
     Route: 065
  3. LIPITOR [Concomitant]
     Route: 065
     Dates: start: 19970101
  4. TICLOPIDINE HCL [Concomitant]
     Dosage: 1-2 DOSES
     Route: 065
  5. CORDARONE [Concomitant]
     Route: 065
  6. FERROGRAD [Concomitant]
     Route: 065
  7. DILTIAZEM HCL [Concomitant]
     Dosage: 300 (UNKNOWN MASS UNIT)/DAY
     Route: 065
  8. XANTHIUM [Concomitant]
     Dosage: 300 (UNKNOWN MASS UNIT)/DAY
     Route: 065
  9. CORVATARD [Concomitant]
     Dosage: 3X1
     Route: 065
  10. ZANTAC [Concomitant]
     Dosage: 300 (UNKNOWN MASS UNIT)/DAY
     Route: 065
  11. BURINEX [Concomitant]
     Route: 065
  12. CALCIUM CARBONATE [Concomitant]
     Route: 065
  13. DIAFUSOR [Concomitant]
     Route: 065
  14. ALDACTONE [Concomitant]
     Route: 065
  15. AMLOR [Concomitant]
     Route: 065
  16. FLUNITRAZEPAM [Concomitant]
     Route: 065
  17. EUTHYROX [Concomitant]
     Route: 065
  18. INSULATARD NPH HUMAN [Concomitant]
     Route: 065
  19. DUOVENT AEROSOL [Concomitant]
     Route: 065
  20. DUOVENT AEROSOL [Concomitant]
     Route: 065
  21. SERETIDE [Concomitant]
     Route: 065
  22. SERETIDE [Concomitant]
     Dosage: 25/250 2 DOSES BID
     Route: 065
  23. MARCOUMAR [Concomitant]
     Route: 065
  24. MEDROL [Concomitant]
     Dosage: 2 LITERS/MIN
     Route: 065
  25. AUGMENTIN '125' [Concomitant]
     Route: 065
  26. AUGMENTIN '125' [Concomitant]
     Dosage: PATIENT RECEIVED AUGMENTIN ON APPROX. 10 DAYS
     Route: 065
  27. ACTRAPID [Concomitant]
     Dosage: 14 +16 +14 UNITS
     Route: 058

REACTIONS (4)
  - MYOCARDIAL INFARCTION [None]
  - PULMONARY OEDEMA [None]
  - RESPIRATORY FAILURE [None]
  - SUDDEN DEATH [None]
